FAERS Safety Report 12735666 (Version 1)
Quarter: 2016Q3

REPORT INFORMATION
  Report Type: Spontaneous
  Country: US (occurrence: US)
  Receive Date: 20160912
  Receipt Date: 20160912
  Transmission Date: 20161109
  Serious: No
  Sender: FDA-Public Use
  Company Number: US-GLENMARK PHARMACEUTICALS INC, USA.-2016GMK023851

PATIENT

DRUGS (1)
  1. GABAPENTIN. [Suspect]
     Active Substance: GABAPENTIN
     Indication: PAIN
     Dosage: HALF A TABLET EVERY OTHER DAY AS NEEDED AT NIGHT
     Route: 065

REACTIONS (3)
  - Product use issue [Unknown]
  - Eczema [Unknown]
  - Rash [Unknown]
